FAERS Safety Report 4734021-6 (Version None)
Quarter: 2005Q3

REPORT INFORMATION
  Report Type: 
  Country: None (occurrence: None)
  Receive Date: 20050721
  Receipt Date: 20050510
  Transmission Date: 20060218
  Serious: No
  Sender: FDA-Public Use
  Company Number: 2005SP000663

PATIENT
  Age: 57 Year
  Sex: Female

DRUGS (2)
  1. LUNESTA [Suspect]
     Dosage: 2 MG; HS; ORAL
     Route: 048
     Dates: start: 20050401, end: 20050401
  2. LUNESTA [Suspect]
     Dosage: 1.5 MG; ORAL
     Route: 048
     Dates: start: 20050501

REACTIONS (2)
  - CONFUSIONAL STATE [None]
  - MENTAL IMPAIRMENT [None]
